FAERS Safety Report 5475687-5 (Version None)
Quarter: 2007Q4

REPORT INFORMATION
  Report Type: 
  Country: None (occurrence: None)
  Receive Date: 20071003
  Receipt Date: 20070925
  Transmission Date: 20080405
  Serious: Yes (Other)
  Sender: FDA-Public Use
  Company Number: CA-BAYER-200715653GDS

PATIENT

DRUGS (1)
  1. AVELOX [Suspect]
     Indication: PNEUMONIA
     Route: 042

REACTIONS (2)
  - BLOOD PRESSURE DECREASED [None]
  - SHOCK [None]
